FAERS Safety Report 9915992 (Version 2)
Quarter: 2014Q2

REPORT INFORMATION
  Report Type: Spontaneous
  Country: US (occurrence: US)
  Receive Date: 20140221
  Receipt Date: 20140407
  Transmission Date: 20141212
  Serious: Yes (Death, Life-Threatening, Hospitalization, Other)
  Sender: FDA-Public Use
  Company Number: US-009507513-1402USA008047

PATIENT
  Sex: Female
  Weight: 90.7 kg

DRUGS (1)
  1. JANUVIA [Suspect]
     Indication: TYPE 2 DIABETES MELLITUS
     Dosage: 100 MG, QD
     Route: 048
     Dates: start: 20100104

REACTIONS (19)
  - Adenocarcinoma pancreas [Fatal]
  - Pancreatic carcinoma metastatic [Unknown]
  - Coronary artery bypass [Unknown]
  - Respiratory failure [Unknown]
  - Acute myocardial infarction [Unknown]
  - Gastrointestinal haemorrhage [Unknown]
  - Pancreatitis chronic [Not Recovered/Not Resolved]
  - Renal failure acute [Unknown]
  - Cholelithiasis [Unknown]
  - Gastrooesophageal reflux disease [Unknown]
  - Peripheral vascular disorder [Unknown]
  - Coronary artery disease [Unknown]
  - Transient ischaemic attack [Unknown]
  - Nephrolithiasis [Unknown]
  - Dehydration [Unknown]
  - Cardiorenal syndrome [Unknown]
  - Fluid overload [Unknown]
  - Pulmonary oedema [Unknown]
  - Urinary tract infection [Unknown]
